FAERS Safety Report 19281740 (Version 2)
Quarter: 2021Q2

REPORT INFORMATION
  Report Type: Other
  Country: US (occurrence: US)
  Receive Date: 20210521
  Receipt Date: 20210526
  Transmission Date: 20210717
  Serious: Yes (Hospitalization)
  Sender: FDA-Public Use
  Company Number: US-ROCHE-2829274

PATIENT
  Sex: Male
  Weight: 47.67 kg

DRUGS (5)
  1. XELODA [Suspect]
     Active Substance: CAPECITABINE
     Indication: BILE DUCT ADENOCARCINOMA
     Dosage: MONDAY TO FRIDAY DURING RADIATION TREATMENT FOR 6 WEEKS
     Route: 048
  2. XELODA [Suspect]
     Active Substance: CAPECITABINE
     Indication: HEPATOBILIARY CANCER
  3. CARVEDILOL. [Concomitant]
     Active Substance: CARVEDILOL
  4. ATORVASTATIN CALCIUM. [Concomitant]
     Active Substance: ATORVASTATIN CALCIUM
     Indication: BLOOD PRESSURE MEASUREMENT
     Route: 048
  5. FAMOTIDINE. [Concomitant]
     Active Substance: FAMOTIDINE
     Route: 048

REACTIONS (4)
  - Off label use [Unknown]
  - Asthenia [Recovered/Resolved]
  - Illness [Unknown]
  - Abdominal discomfort [Unknown]
